FAERS Safety Report 4302424-X (Version None)
Quarter: 2004Q1

REPORT INFORMATION
  Report Type: 
  Country: None (occurrence: None)
  Receive Date: 20040223
  Receipt Date: 20040223
  Transmission Date: 20041129
  Serious: Yes (Death)
  Sender: FDA-Public Use
  Company Number: None

PATIENT
  Sex: Male

DRUGS (3)
  1. WARFARIN SODIUM [Suspect]
     Indication: DEEP VEIN THROMBOSIS
     Dosage: 7.5 MG DAILY ORAL
     Route: 048
     Dates: start: 20031201, end: 20040113
  2. HEPARIN [Concomitant]
  3. HEMODIALYSIS [Concomitant]

REACTIONS (3)
  - GINGIVAL BLEEDING [None]
  - INJECTION SITE HAEMORRHAGE [None]
  - RETROPERITONEAL HAEMORRHAGE [None]
